FAERS Safety Report 8329226-1 (Version None)
Quarter: 2012Q2

REPORT INFORMATION
  Report Type: 
  Country: None (occurrence: None)
  Receive Date: 20120430
  Receipt Date: 20120416
  Transmission Date: 20120825
  Serious: Yes (Death)
  Sender: FDA-Public Use
  Company Number: 1261354

PATIENT
  Age: 37 Year
  Sex: Male
  Weight: 108.8633 kg

DRUGS (2)
  1. PROPOFOL [Suspect]
     Indication: SEDATION
     Dosage: INTRAVENOUS DRIP
     Route: 041
  2. BUPIVACAINE HCL [Suspect]
     Indication: NERVE BLOCK
     Dosage: INTRAVENOUS
     Route: 042

REACTIONS (7)
  - BRADYCARDIA [None]
  - CONVULSION [None]
  - POTENTIATING DRUG INTERACTION [None]
  - HYPERSENSITIVITY [None]
  - CARDIAC ARREST [None]
  - CARDIO-RESPIRATORY ARREST [None]
  - INCORRECT ROUTE OF DRUG ADMINISTRATION [None]
